FAERS Safety Report 5076816-8 (Version None)
Quarter: 2006Q3

REPORT INFORMATION
  Report Type: 
  Country: None (occurrence: None)
  Receive Date: 20060807
  Receipt Date: 20050704
  Transmission Date: 20061208
  Serious: Yes (Hospitalization, Other)
  Sender: FDA-Public Use
  Company Number: 2005BH000682

PATIENT
  Age: 72 Year
  Sex: Female

DRUGS (1)
  1. TAZICEF [Suspect]
     Indication: PROPHYLAXIS
     Dosage: 1 GM;ONCE;IV
     Route: 042

REACTIONS (11)
  - ANAPHYLACTIC SHOCK [None]
  - BLOOD CREATININE DECREASED [None]
  - BLOOD UREA INCREASED [None]
  - BUNDLE BRANCH BLOCK LEFT [None]
  - CULTURE URINE POSITIVE [None]
  - DERMATITIS CONTACT [None]
  - FALL [None]
  - HAEMATURIA [None]
  - MYOCARDIAL INFARCTION [None]
  - PSEUDOMONAS INFECTION [None]
  - RHONCHI [None]
